FAERS Safety Report 6339565-1 (Version None)
Quarter: 2009Q3

REPORT INFORMATION
  Report Type: 
  Country: None (occurrence: None)
  Receive Date: 20090827
  Receipt Date: 20090715
  Transmission Date: 20100115
  Serious: No
  Sender: FDA-Public Use
  Company Number: 001273

PATIENT
  Age: 32 Year
  Sex: Female

DRUGS (3)
  1. LACOSAMIDE [Suspect]
     Indication: CONVULSION
     Dosage: (ORAL)
     Route: 048
  2. DILANTIN [Concomitant]
  3. LAMICTAL [Concomitant]

REACTIONS (1)
  - DROOLING [None]
